FAERS Safety Report 4286285-3 (Version None)
Quarter: 2004Q1

REPORT INFORMATION
  Report Type: 
  Country: None (occurrence: None)
  Receive Date: 20040129
  Receipt Date: 20030812
  Transmission Date: 20041129
  Serious: Yes (Hospitalization)
  Sender: FDA-Public Use
  Company Number: A001-002-005737

PATIENT
  Age: 89 Year
  Sex: Female
  Weight: 72 kg

DRUGS (20)
  1. ARICEPT [Suspect]
     Indication: DEMENTIA ALZHEIMER'S TYPE
     Dosage: 5 MG, 1 IN 1 D, ORAL;10 MG, 1 IN 1 1, ORAL;20 MG, 2 IN 1 D,ORAL;5 MG, 1 IN 1 D, ORAL
     Route: 048
     Dates: start: 20020101, end: 20030101
  2. ARICEPT [Suspect]
     Indication: DEMENTIA ALZHEIMER'S TYPE
     Dosage: 5 MG, 1 IN 1 D, ORAL;10 MG, 1 IN 1 1, ORAL;20 MG, 2 IN 1 D,ORAL;5 MG, 1 IN 1 D, ORAL
     Route: 048
     Dates: start: 20030101, end: 20030401
  3. ARICEPT [Suspect]
     Indication: DEMENTIA ALZHEIMER'S TYPE
     Dosage: 5 MG, 1 IN 1 D, ORAL;10 MG, 1 IN 1 1, ORAL;20 MG, 2 IN 1 D,ORAL;5 MG, 1 IN 1 D, ORAL
     Route: 048
     Dates: start: 20030401, end: 20030519
  4. ARICEPT [Suspect]
     Indication: DEMENTIA ALZHEIMER'S TYPE
     Dosage: 5 MG, 1 IN 1 D, ORAL;10 MG, 1 IN 1 1, ORAL;20 MG, 2 IN 1 D,ORAL;5 MG, 1 IN 1 D, ORAL
     Route: 048
     Dates: start: 20030601
  5. REMINYL [Suspect]
     Indication: DEMENTIA ALZHEIMER'S TYPE
     Dosage: 8 MG, 2 IN 1 D, ORAL
     Route: 048
     Dates: start: 20030501, end: 20030501
  6. ACETYLSALICYLIC ACID SRT [Concomitant]
  7. TYLENOL [Concomitant]
  8. VIOXX [Concomitant]
  9. COUMADIN [Concomitant]
  10. THYROID TAB [Concomitant]
  11. ULTRAM [Concomitant]
  12. VITAMIN E [Concomitant]
  13. AMITRIPTYLINE HCL [Concomitant]
  14. QUININE (QUININE) [Concomitant]
  15. GLAUCOMA DROPS (ANTIGLAUCOMA PREPARATION) [Concomitant]
  16. XALATAN [Concomitant]
  17. CLONIDINE PATCH (CLONIDINE) [Concomitant]
  18. BLOOD PRESURE PILL [Concomitant]
  19. DIGOXIN [Concomitant]
  20. CALCIUM (CALCIUM) [Concomitant]

REACTIONS (3)
  - AGITATION [None]
  - CARDIAC FAILURE CONGESTIVE [None]
  - INSOMNIA [None]
